FAERS Safety Report 8216438-0 (Version None)
Quarter: 2012Q1

REPORT INFORMATION
  Report Type: 
  Country: None (occurrence: None)
  Receive Date: 20120316
  Receipt Date: 20120314
  Transmission Date: 20120608
  Serious: Yes (Death, Hospitalization, Other)
  Sender: FDA-Public Use
  Company Number: PHHY2012NI022973

PATIENT
  Age: 54 Year
  Sex: Male

DRUGS (1)
  1. EXFORGE [Suspect]
     Indication: HYPERTENSION
     Dosage: 160MG VALS/5MG AMLO, UNK

REACTIONS (10)
  - METASTASES TO BONE [None]
  - HAEMATEMESIS [None]
  - RENAL FAILURE [None]
  - HYPOGLYCAEMIA [None]
  - PULMONARY OEDEMA [None]
  - DEATH [None]
  - BRAIN ABSCESS [None]
  - METASTASES TO CENTRAL NERVOUS SYSTEM [None]
  - LUNG NEOPLASM MALIGNANT [None]
  - ASCITES [None]
